FAERS Safety Report 24645150 (Version 1)
Quarter: 2024Q4

REPORT INFORMATION
  Report Type: Spontaneous
  Country: US (occurrence: US)
  Receive Date: 20241121
  Receipt Date: 20241121
  Transmission Date: 20250115
  Serious: No
  Sender: TEVA
  Company Number: US-TEVA-VS-3262054

PATIENT

DRUGS (1)
  1. AUSTEDO XR [Suspect]
     Active Substance: DEUTETRABENAZINE
     Indication: Huntington^s disease
     Dosage: ONE 6 MG TABLET + ONE 24 MG TABLET
     Route: 065

REACTIONS (2)
  - Dyskinesia [Unknown]
  - Drug ineffective [Unknown]
